FAERS Safety Report 8372686-0 (Version None)
Quarter: 2012Q2

REPORT INFORMATION
  Report Type: 
  Country: None (occurrence: None)
  Receive Date: 20120521
  Receipt Date: 20120509
  Transmission Date: 20120825
  Serious: Yes (Other)
  Sender: FDA-Public Use
  Company Number: FR-MILLENNIUM PHARMACEUTICALS, INC.-2012-02311

PATIENT

DRUGS (10)
  1. DEXAMETHASONE [Suspect]
     Indication: MULTIPLE MYELOMA
     Dosage: 20 MG, UNK
     Dates: start: 20120210, end: 20120312
  2. CLAMOXYL                           /00249601/ [Concomitant]
     Dosage: UNK
     Dates: start: 20120218
  3. GLIPIZIDE [Concomitant]
     Dosage: 5 MG, UNK
  4. REPAGLINIDE [Concomitant]
     Dosage: 5 MG, UNK
  5. ATORVASTATIN [Concomitant]
     Dosage: 10 MG, UNK
  6. ARANESP [Concomitant]
  7. ZELITREX                           /01269701/ [Concomitant]
     Dosage: 500 MG, UNK
  8. AUGMENTIN '125' [Concomitant]
     Dosage: UNK
     Dates: start: 20120201, end: 20120201
  9. VELCADE [Suspect]
     Indication: MULTIPLE MYELOMA
     Dosage: 1.3 MG/M2, UNK
     Dates: start: 20120210, end: 20120312
  10. REVLIMID [Suspect]
     Indication: MULTIPLE MYELOMA
     Dosage: 25 MG, UNK
     Dates: start: 20120210, end: 20120312

REACTIONS (1)
  - PERONEAL NERVE PALSY [None]
